FAERS Safety Report 7598617-9 (Version None)
Quarter: 2011Q3

REPORT INFORMATION
  Report Type: 
  Country: None (occurrence: None)
  Receive Date: 20110710
  Receipt Date: 20110628
  Transmission Date: 20111222
  Serious: Yes (Death, Hospitalization, Other)
  Sender: FDA-Public Use
  Company Number: FR-AMGEN-FRASP2011016346

PATIENT
  Sex: Male

DRUGS (10)
  1. COAPROVEL 300/12.5 [Concomitant]
     Route: 048
  2. LORAMYC [Concomitant]
     Route: 048
  3. ANTINEOPLASTIC AGENTS [Concomitant]
  4. OXALIPLATIN [Concomitant]
  5. NEULASTA [Suspect]
     Indication: CHEMOTHERAPY
     Dosage: UNK
  6. NEXIUM [Concomitant]
     Dosage: UNK
     Route: 048
  7. BISOPROLOL FUMARATE [Concomitant]
     Route: 048
  8. GLUCOPHAGE FORTE [Concomitant]
     Dosage: UNK
     Route: 048
  9. LEUCOVORIN CALCIUM [Concomitant]
  10. FLUOROURACIL [Concomitant]

REACTIONS (6)
  - NEUTROPENIA [None]
  - FEBRILE BONE MARROW APLASIA [None]
  - MEDICATION ERROR [None]
  - DEATH [None]
  - KLEBSIELLA SEPSIS [None]
  - SEPTIC SHOCK [None]
